FAERS Safety Report 5630829-3 (Version None)
Quarter: 2008Q1

REPORT INFORMATION
  Report Type: 
  Country: None (occurrence: None)
  Receive Date: 20080219
  Receipt Date: 20080213
  Transmission Date: 20080703
  Serious: Yes (Other)
  Sender: FDA-Public Use
  Company Number: FR-BAUSCH-2008BL000642

PATIENT
  Age: 94 Year
  Sex: Female
  Weight: 50 kg

DRUGS (5)
  1. CARTEOL 1% COLLYRE [Suspect]
     Indication: GLAUCOMA
     Route: 047
  2. ATENOLOL [Interacting]
     Indication: DRUG USE FOR UNKNOWN INDICATION
     Dates: end: 20071023
  3. EXELON /SCH/ [Interacting]
     Indication: DEMENTIA ALZHEIMER'S TYPE
     Route: 048
     Dates: start: 20071023, end: 20071023
  4. RISPERDAL /SWE/ [Concomitant]
     Indication: HALLUCINATION
     Route: 048
  5. DEPAMIDE [Concomitant]
     Indication: PSYCHOTIC DISORDER
     Route: 048

REACTIONS (5)
  - DEPRESSED LEVEL OF CONSCIOUSNESS [None]
  - DRUG INTERACTION [None]
  - HYPOTENSION [None]
  - MALAISE [None]
  - SINUS BRADYCARDIA [None]
